FAERS Safety Report 5009222-2 (Version None)
Quarter: 2006Q2

REPORT INFORMATION
  Report Type: 
  Country: None (occurrence: None)
  Receive Date: 20060519
  Receipt Date: 20060508
  Transmission Date: 20061013
  Serious: Yes (Other)
  Sender: FDA-Public Use
  Company Number: 2006-01085

PATIENT
  Age: 72 Year
  Sex: Male
  Weight: 88 kg

DRUGS (6)
  1. VELCADE [Suspect]
     Indication: PLASMACYTOMA
     Dosage: 2.60 MG, INTRAVENOUS
     Route: 042
     Dates: end: 20060330
  2. METOPROLOL SUCCINATE [Concomitant]
  3. NIFEDIPINE [Concomitant]
  4. FUROSEMIDE [Concomitant]
  5. COTRIM (SULFAMETHOXAZOLE) [Concomitant]
  6. ZOVIRAX [Concomitant]

REACTIONS (2)
  - EYELID OEDEMA [None]
  - LEUKOCYTOCLASTIC VASCULITIS [None]
